FAERS Safety Report 8268061-X (Version None)
Quarter: 2012Q2

REPORT INFORMATION
  Report Type: 
  Country: None (occurrence: None)
  Receive Date: 20120409
  Receipt Date: 20120404
  Transmission Date: 20120825
  Serious: Yes (Other)
  Sender: FDA-Public Use
  Company Number: US-PFIZER INC-2012085733

PATIENT
  Sex: Female
  Weight: 77.098 kg

DRUGS (4)
  1. CLARITIN [Concomitant]
     Dosage: UNK
  2. HYDROCHLOROTHIAZIDE [Concomitant]
     Indication: HYPERTENSION
     Dosage: 12.5 MG, UNK
  3. QUINAPRIL HCL [Suspect]
     Indication: HYPERTENSION
     Dosage: 40 MG, 1X/DAY
     Route: 048
     Dates: start: 20120301, end: 20120404
  4. OMEPRAZOLE [Concomitant]
     Dosage: UNK

REACTIONS (1)
  - COELIAC DISEASE [None]
